FAERS Safety Report 4964302-2 (Version None)
Quarter: 2006Q2

REPORT INFORMATION
  Report Type: 
  Country: None (occurrence: None)
  Receive Date: 20060406
  Receipt Date: 20060308
  Transmission Date: 20061013
  Serious: Yes (Hospitalization)
  Sender: FDA-Public Use
  Company Number: US-ABBOTT-06P-163-0327595-00

PATIENT
  Sex: Male
  Weight: 63.106 kg

DRUGS (11)
  1. KALETRA [Suspect]
     Indication: HIV INFECTION
     Route: 048
     Dates: start: 20051130
  2. TRUVADA [Concomitant]
     Indication: ANTIVIRAL PROPHYLAXIS
     Route: 048
     Dates: start: 20051130
  3. BACTRIM [Concomitant]
     Indication: PNEUMOCYSTIS JIROVECI PNEUMONIA
     Route: 048
  4. STROVITE [Concomitant]
     Indication: MEDICAL DIET
     Route: 048
  5. FLUCONAZOLE [Concomitant]
     Indication: OROPHARYNGEAL CANDIDIASIS
     Route: 048
  6. AMITRIPTYLINE HYDROCHLORIDE [Concomitant]
     Indication: INSOMNIA
     Route: 048
  7. OXYCOCET [Concomitant]
     Indication: PAIN
     Route: 048
  8. METHADONE HCL [Concomitant]
     Indication: DRUG ABUSER
     Route: 048
  9. PROCHLORPERAZINE EDISYLATE [Concomitant]
     Indication: NAUSEA
     Route: 048
     Dates: start: 20051207
  10. ZITHROMAX [Concomitant]
     Indication: DRUG USE FOR UNKNOWN INDICATION
     Route: 048
     Dates: start: 20051109
  11. ENSURE PLUS [Concomitant]
     Indication: WEIGHT DECREASED
     Route: 048
     Dates: start: 20051109

REACTIONS (2)
  - BACTERIAL PYELONEPHRITIS [None]
  - DYSPHONIA [None]
